FAERS Safety Report 17329687 (Version 1)
Quarter: 2020Q1

REPORT INFORMATION
  Report Type: Spontaneous
  Country: US (occurrence: US)
  Receive Date: 20200127
  Receipt Date: 20200127
  Transmission Date: 20200409
  Serious: Yes (Life-Threatening)
  Sender: FDA-Public Use
  Company Number: None

PATIENT
  Age: 65 Year
  Sex: Male
  Weight: 59.85 kg

DRUGS (6)
  1. PLAQUENIL [Concomitant]
     Active Substance: HYDROXYCHLOROQUINE SULFATE
  2. TRAMADOL. [Concomitant]
     Active Substance: TRAMADOL
  3. OXYCODONE [Concomitant]
     Active Substance: OXYCODONE
  4. GABAPENTIN. [Concomitant]
     Active Substance: GABAPENTIN
  5. PEPCID [Concomitant]
     Active Substance: FAMOTIDINE
  6. KEYTRUDA [Suspect]
     Active Substance: PEMBROLIZUMAB
     Indication: NEOPLASM MALIGNANT
     Dates: start: 20191209, end: 20200102

REACTIONS (6)
  - Diarrhoea [None]
  - Muscle atrophy [None]
  - Weight decreased [None]
  - Neoplasm [None]
  - Blood sodium decreased [None]
  - Vomiting [None]

NARRATIVE: CASE EVENT DATE: 20191209
